FAERS Safety Report 26006625 (Version 1)
Quarter: 2025Q4

REPORT INFORMATION
  Report Type: Spontaneous
  Country: EU (occurrence: EU)
  Receive Date: 20251106
  Receipt Date: 20251106
  Transmission Date: 20260118
  Serious: Yes (Other)
  Sender: SK LIFE SCIENCE
  Company Number: EU-ACRAF-2025-039365

PATIENT

DRUGS (12)
  1. XCOPRI [Suspect]
     Active Substance: CENOBAMATE
     Indication: Epilepsy
     Dosage: 6.25 MILLIGRAM, QD
     Route: 048
  2. XCOPRI [Suspect]
     Active Substance: CENOBAMATE
     Indication: Severe myoclonic epilepsy of infancy
     Dosage: 12.5 MILLIGRAM, QD
     Route: 048
  3. VALPROATE SODIUM [Concomitant]
     Active Substance: VALPROATE SODIUM
     Indication: Epilepsy
     Dosage: 540 MILLIGRAM, QD
     Route: 065
  4. VALPROATE SODIUM [Concomitant]
     Active Substance: VALPROATE SODIUM
     Indication: Severe myoclonic epilepsy of infancy
  5. FENFLURAMINE [Concomitant]
     Active Substance: FENFLURAMINE
     Indication: Epilepsy
     Dosage: 21 MILLIGRAM, QD
     Route: 065
  6. FENFLURAMINE [Concomitant]
     Active Substance: FENFLURAMINE
     Indication: Severe myoclonic epilepsy of infancy
  7. KALIUMBROMID DESITIN [Concomitant]
     Indication: Epilepsy
     Dosage: 3400 MILLIGRAM, QD
     Route: 065
  8. KALIUMBROMID DESITIN [Concomitant]
     Indication: Severe myoclonic epilepsy of infancy
  9. TOPIRAMATE [Concomitant]
     Active Substance: TOPIRAMATE
     Indication: Epilepsy
     Dosage: 100 MILLIGRAM, QD
     Route: 065
  10. TOPIRAMATE [Concomitant]
     Active Substance: TOPIRAMATE
     Indication: Severe myoclonic epilepsy of infancy
  11. CANNABIDIOL [Concomitant]
     Active Substance: CANNABIDIOL
     Indication: Epilepsy
     Dosage: 130 MILLIGRAM, QD
     Route: 065
  12. CANNABIDIOL [Concomitant]
     Active Substance: CANNABIDIOL
     Indication: Severe myoclonic epilepsy of infancy

REACTIONS (6)
  - Seizure [Recovered/Resolved]
  - Status epilepticus [Recovered/Resolved]
  - Off label use [Unknown]
  - Off label use [Unknown]
  - Off label use [Unknown]
  - Fall [Unknown]
